FAERS Safety Report 20554775 (Version 8)
Quarter: 2023Q2

REPORT INFORMATION
  Report Type: Report from Study
  Country: CA (occurrence: CA)
  Receive Date: 20220304
  Receipt Date: 20230609
  Transmission Date: 20230721
  Serious: Yes (Other)
  Sender: FDA-Public Use
  Company Number: CA-BAUSCH-BL-2021-035899

PATIENT
  Age: 54 Year
  Sex: Male

DRUGS (9)
  1. SILIQ [Suspect]
     Active Substance: BRODALUMAB
     Indication: Psoriasis
     Dosage: DOSAGE: 210MG/ 1.5 ML, WEEK 0,1 AND 2
     Route: 058
     Dates: start: 20210325, end: 202104
  2. SILIQ [Suspect]
     Active Substance: BRODALUMAB
     Dosage: DOSAGE: 210MG/ 1.5 ML
     Route: 058
     Dates: start: 2021, end: 2021
  3. SILIQ [Suspect]
     Active Substance: BRODALUMAB
     Dosage: CURRENT DOSAGE: 210 MG / 1.5 ML, WEEKLY FOR 3 DOSES AND THEN EVERY TWO WEEKS
     Route: 058
     Dates: start: 20220301
  4. INVOKANA [Concomitant]
     Active Substance: CANAGLIFLOZIN
     Indication: Product used for unknown indication
  5. CHLOROTHIAZIDE [Concomitant]
     Active Substance: CHLOROTHIAZIDE
     Indication: Product used for unknown indication
  6. JENTADUETO [Concomitant]
     Active Substance: LINAGLIPTIN\METFORMIN HYDROCHLORIDE
     Indication: Product used for unknown indication
  7. ROSUVASTATIN [Concomitant]
     Active Substance: ROSUVASTATIN
     Indication: Product used for unknown indication
  8. BETAMETHASONE [Concomitant]
     Active Substance: BETAMETHASONE
     Indication: Product used for unknown indication
  9. GLICLAZIDE [Concomitant]
     Active Substance: GLICLAZIDE
     Indication: Product used for unknown indication

REACTIONS (7)
  - Autoimmune pancreatitis [Unknown]
  - Jaundice [Unknown]
  - Liver disorder [Not Recovered/Not Resolved]
  - Blood cholesterol increased [Unknown]
  - Product prescribing error [Unknown]
  - Product communication issue [Unknown]
  - Drug ineffective [Unknown]

NARRATIVE: CASE EVENT DATE: 20210101
